FAERS Safety Report 4327816-4 (Version None)
Quarter: 2004Q1

REPORT INFORMATION
  Report Type: 
  Country: None (occurrence: None)
  Receive Date: 20040325
  Receipt Date: 20040312
  Transmission Date: 20041129
  Serious: Yes (Hospitalization)
  Sender: FDA-Public Use
  Company Number: 04H-163-0253541-00

PATIENT
  Age: 59 Year
  Sex: Female

DRUGS (8)
  1. HEPARIN SODIUM [Suspect]
     Indication: ANTICOAGULANT THERAPY
     Dosage: 15000 UNIT, 2 IN 1 D, SUBCUTANEOUS
     Route: 058
  2. DOXORUBICIN HCL [Concomitant]
  3. PETHIDINE HYDROCHLORIDE [Concomitant]
  4. MORPHINE [Concomitant]
  5. PROCHLORPERAZINE [Concomitant]
  6. ONDANSETRON HCL [Concomitant]
  7. CRYSTALLOID [Concomitant]
  8. ANTIBIOTICS [Concomitant]

REACTIONS (8)
  - ABDOMINAL HAEMATOMA [None]
  - ABDOMINAL PAIN UPPER [None]
  - CHILLS [None]
  - NAUSEA [None]
  - PYREXIA [None]
  - SPLENIC HAEMORRHAGE [None]
  - SPLENIC RUPTURE [None]
  - VOMITING [None]
